FAERS Safety Report 7047749-2 (Version None)
Quarter: 2010Q4

REPORT INFORMATION
  Report Type: 
  Country: None (occurrence: None)
  Receive Date: 20101015
  Receipt Date: 20101007
  Transmission Date: 20110411
  Serious: Yes (Other)
  Sender: FDA-Public Use
  Company Number: US-PFIZER INC-2010128445

PATIENT
  Age: 25 Year
  Sex: Female
  Weight: 58.957 kg

DRUGS (2)
  1. CHANTIX [Suspect]
     Indication: SMOKING CESSATION THERAPY
     Dosage: 0.5 MG, DAILY
     Route: 048
     Dates: start: 20101005, end: 20101006
  2. DEPO-PROVERA [Concomitant]
     Dosage: UNK

REACTIONS (3)
  - EYELID DISORDER [None]
  - EYELID PTOSIS [None]
  - VISION BLURRED [None]
